FAERS Safety Report 8268192-4 (Version None)
Quarter: 2012Q2

REPORT INFORMATION
  Report Type: 
  Country: None (occurrence: None)
  Receive Date: 20120409
  Receipt Date: 20120326
  Transmission Date: 20120825
  Serious: Yes (Hospitalization)
  Sender: FDA-Public Use
  Company Number: CA-ROCHE-1053158

PATIENT
  Sex: Female
  Weight: 113.95 kg

DRUGS (11)
  1. ACTEMRA [Suspect]
     Indication: RHEUMATOID ARTHRITIS
     Route: 042
     Dates: start: 20100825, end: 20120207
  2. TRAZODONE HCL [Concomitant]
  3. PREDNISONE [Concomitant]
  4. SPIRONOLACTONE [Concomitant]
  5. RABEPRAZOLE SODIUM [Concomitant]
  6. LOMOTIL [Concomitant]
  7. POTASSIUM CHLORIDE [Concomitant]
  8. FUROSEMIDE [Concomitant]
  9. DOXYCYCLINE [Concomitant]
  10. AMITRIPTYLINE HYDROCHLORIDE [Concomitant]
  11. NADOLOL [Concomitant]

REACTIONS (3)
  - SINUSITIS [None]
  - DIARRHOEA [None]
  - OSTEOARTHRITIS [None]
